FAERS Safety Report 5811213-6 (Version None)
Quarter: 2008Q3

REPORT INFORMATION
  Report Type: 
  Country: None (occurrence: None)
  Receive Date: 20080710
  Receipt Date: 20080630
  Transmission Date: 20090109
  Serious: Yes (Hospitalization)
  Sender: FDA-Public Use
  Company Number: 100#08#2008-03370

PATIENT
  Age: 2 Year
  Sex: Female

DRUGS (7)
  1. METHOTREXATE [Suspect]
     Indication: HISTIOCYTOSIS HAEMATOPHAGIC
  2. DEXAMETHASONE TAB [Suspect]
     Indication: HISTIOCYTOSIS HAEMATOPHAGIC
  3. CYCLOSPORINE [Suspect]
     Indication: HISTIOCYTOSIS HAEMATOPHAGIC
  4. ETOPOSIDE [Suspect]
     Indication: HISTIOCYTOSIS HAEMATOPHAGIC
  5. IMMUNOGLOBULINS (IMMUNOGLOBULINS) [Suspect]
     Indication: HISTIOCYTOSIS HAEMATOPHAGIC
     Dosage: 1 G/KG
  6. ACETYLSALICYLIC ACID SRT [Concomitant]
  7. METHYLPREDNISOLONE [Concomitant]

REACTIONS (5)
  - AXONAL NEUROPATHY [None]
  - DRUG INEFFECTIVE [None]
  - MACROPHAGE ACTIVATION [None]
  - PARALYSIS FLACCID [None]
  - POLYNEUROPATHY [None]
